FAERS Safety Report 9343341 (Version 2)
Quarter: 2013Q3

REPORT INFORMATION
  Report Type: Spontaneous
  Country: FR (occurrence: FR)
  Receive Date: 20130612
  Receipt Date: 20130703
  Transmission Date: 20140515
  Serious: Yes (Hospitalization)
  Sender: FDA-Public Use
  Company Number: FR-ROCHE-1233073

PATIENT
  Age: 55 Year
  Sex: Female
  Weight: 77 kg

DRUGS (4)
  1. PEGASYS [Suspect]
     Indication: CHRONIC HEPATITIS C
     Route: 058
     Dates: start: 20120511, end: 20120706
  2. INCIVO [Suspect]
     Indication: HEPATITIS C
     Route: 065
     Dates: start: 20120511, end: 20120702
  3. COPEGUS [Concomitant]
     Indication: HEPATITIS C
     Route: 048
     Dates: start: 20120511, end: 20120706
  4. VIRAFERONPEG [Concomitant]
     Indication: ECZEMA

REACTIONS (2)
  - Drug eruption [Recovered/Resolved]
  - Neuropathy peripheral [Recovered/Resolved with Sequelae]
